FAERS Safety Report 9714150 (Version 2)
Quarter: 2015Q3

REPORT INFORMATION
  Report Type: Spontaneous
  Country: US (occurrence: US)
  Receive Date: 20131126
  Receipt Date: 20150803
  Transmission Date: 20151125
  Serious: No
  Sender: FDA-Public Use
  Company Number: US-GILEAD-2008-0019075

PATIENT
  Age: 38 Year
  Sex: Male
  Weight: 81.19 kg

DRUGS (6)
  1. COREG [Concomitant]
     Active Substance: CARVEDILOL
  2. LETAIRIS [Suspect]
     Active Substance: AMBRISENTAN
     Route: 048
     Dates: start: 20081028
  3. COUMADIN [Concomitant]
     Active Substance: WARFARIN SODIUM
  4. ALTACE [Concomitant]
     Active Substance: RAMIPRIL
  5. DIGOXIN. [Concomitant]
     Active Substance: DIGOXIN
  6. MULTIVITAMIN [Concomitant]
     Active Substance: VITAMINS

REACTIONS (1)
  - Dyspnoea [None]
